FAERS Safety Report 17038975 (Version 1)
Quarter: 2019Q4

REPORT INFORMATION
  Report Type: Spontaneous
  Country: GB (occurrence: GB)
  Receive Date: 20191115
  Receipt Date: 20191115
  Transmission Date: 20200122
  Serious: Yes (Other)
  Sender: FDA-Public Use
  Company Number: GB-BAUSCH-BL-2019-061736

PATIENT
  Age: 67 Year
  Sex: Female

DRUGS (1)
  1. KYNTHEUM (BRODALUMAB) [Suspect]
     Active Substance: BRODALUMAB
     Indication: PSORIASIS
     Route: 065
     Dates: start: 201905, end: 20191017

REACTIONS (1)
  - Depression [Unknown]

NARRATIVE: CASE EVENT DATE: 20191001
